FAERS Safety Report 15938255 (Version 3)
Quarter: 2019Q2

REPORT INFORMATION
  Report Type: Spontaneous
  Country: US (occurrence: US)
  Receive Date: 20190208
  Receipt Date: 20190418
  Transmission Date: 20190711
  Serious: Yes (Death, Congenital Anomaly, Other)
  Sender: FDA-Public Use
  Company Number: US-HORIZON-VIM-0057-2019

PATIENT
  Sex: Female
  Weight: 63.5 kg

DRUGS (16)
  1. PRILOSEC [Suspect]
     Active Substance: OMEPRAZOLE MAGNESIUM
     Indication: PRODUCT USED FOR UNKNOWN INDICATION
     Route: 048
     Dates: start: 2000
  2. LANTUS [Concomitant]
     Active Substance: INSULIN GLARGINE
     Route: 065
     Dates: start: 20020802
  3. VIMOVO [Suspect]
     Active Substance: ESOMEPRAZOLE MAGNESIUM\NAPROXEN
     Indication: PRODUCT USED FOR UNKNOWN INDICATION
     Route: 048
     Dates: start: 2000
  4. ADALAT [Concomitant]
     Active Substance: NIFEDIPINE
     Route: 065
     Dates: start: 20011221
  5. TEMAZEPAM. [Concomitant]
     Active Substance: TEMAZEPAM
     Route: 065
     Dates: start: 20020802
  6. ULTRAM [Concomitant]
     Active Substance: TRAMADOL HYDROCHLORIDE
     Route: 065
     Dates: start: 20020119
  7. DIAZEPAM. [Concomitant]
     Active Substance: DIAZEPAM
     Route: 065
     Dates: start: 20020103
  8. PRILOSEC [Suspect]
     Active Substance: OMEPRAZOLE MAGNESIUM
     Route: 048
     Dates: start: 20020109, end: 20020730
  9. ACIPHEX [Suspect]
     Active Substance: RABEPRAZOLE SODIUM
     Indication: PRODUCT USED FOR UNKNOWN INDICATION
     Route: 065
     Dates: start: 2000
  10. PRILOSEC [Suspect]
     Active Substance: OMEPRAZOLE MAGNESIUM
     Indication: PRODUCT USED FOR UNKNOWN INDICATION
     Route: 048
     Dates: start: 20020119
  11. ZITHROMAX [Concomitant]
     Active Substance: AZITHROMYCIN DIHYDRATE
     Route: 065
     Dates: start: 20020802
  12. CIMETIDINE [Concomitant]
     Active Substance: CIMETIDINE
     Route: 065
     Dates: start: 20020802
  13. SENSIPAR [Concomitant]
     Active Substance: CINACALCET HYDROCHLORIDE
     Route: 065
     Dates: start: 20020802
  14. HYDROCHLOROTHIAZID [Concomitant]
     Active Substance: HYDROCHLOROTHIAZIDE
     Route: 065
     Dates: start: 20011221
  15. AVANDIA [Concomitant]
     Active Substance: ROSIGLITAZONE MALEATE
     Route: 065
     Dates: start: 20020103
  16. GLUCOTROL [Concomitant]
     Active Substance: GLIPIZIDE
     Route: 065
     Dates: start: 20020802

REACTIONS (4)
  - Chronic kidney disease [Unknown]
  - Right ventricular failure [Fatal]
  - End stage renal disease [Fatal]
  - Renal failure [Unknown]
